FAERS Safety Report 8350050-8 (Version None)
Quarter: 2012Q2

REPORT INFORMATION
  Report Type: 
  Country: None (occurrence: None)
  Receive Date: 20120510
  Receipt Date: 20120430
  Transmission Date: 20120825
  Serious: Yes (Hospitalization)
  Sender: FDA-Public Use
  Company Number: US-ACTELION-A-US2012-64574

PATIENT

DRUGS (3)
  1. TRACLEER [Suspect]
     Indication: PULMONARY ARTERIAL HYPERTENSION
     Dosage: 62.5 MG, BID
     Route: 048
     Dates: start: 20110525
  2. SILDENAFIL [Concomitant]
  3. REMODULIN [Concomitant]

REACTIONS (3)
  - BACTERIAL TRACHEITIS [None]
  - BACTERIAL INFECTION [None]
  - HYPOXIA [None]
